FAERS Safety Report 8960052 (Version 1)
Quarter: 2012Q4

REPORT INFORMATION
  Report Type: Report from Study
  Country: DK (occurrence: DK)
  Receive Date: 20121212
  Receipt Date: 20121212
  Transmission Date: 20130627
  Serious: Yes (Death)
  Sender: FDA-Public Use
  Company Number: DK-ROCHE-1152551

PATIENT

DRUGS (3)
  1. CAPECITABINE [Suspect]
     Indication: GASTRIC CANCER
     Route: 065
     Dates: start: 20111220, end: 20120117
  2. DOCETAXEL [Suspect]
     Indication: GASTRIC CANCER
     Route: 065
     Dates: start: 20111220, end: 20120117
  3. OXALIPLATIN [Suspect]
     Indication: GASTRIC CANCER
     Route: 065
     Dates: start: 20111220, end: 20120117

REACTIONS (1)
  - Embolism [Fatal]
